FAERS Safety Report 5507467-6 (Version None)
Quarter: 2007Q4

REPORT INFORMATION
  Report Type: 
  Country: None (occurrence: None)
  Receive Date: 20071102
  Receipt Date: 20071024
  Transmission Date: 20080405
  Serious: Yes (Hospitalization)
  Sender: FDA-Public Use
  Company Number: 2007-162642-NL

PATIENT
  Age: 22 Year
  Sex: Female

DRUGS (1)
  1. ETONOGESTREL (BATCH #: 928895 / 951189) [Suspect]
     Indication: CONTRACEPTION
     Dosage: DF, SUBDERMAL
     Route: 059
     Dates: end: 20070417

REACTIONS (2)
  - CHEST PAIN [None]
  - PARAESTHESIA [None]
